FAERS Safety Report 15726858 (Version 2)
Quarter: 2018Q4

REPORT INFORMATION
  Report Type: Spontaneous
  Country: US (occurrence: US)
  Receive Date: 20181217
  Receipt Date: 20181220
  Transmission Date: 20190205
  Serious: Yes (Other)
  Sender: FDA-Public Use
  Company Number: US-JNJFOC-20181206493

PATIENT
  Age: 12 Year
  Sex: Male
  Weight: 61.24 kg

DRUGS (3)
  1. TYLENOL COLD PLUS HEAD CONGESTION SEVERE [Suspect]
     Active Substance: ACETAMINOPHEN\GUAIFENESIN\PHENYLEPHRINE HYDROCHLORIDE
     Indication: PYREXIA
     Dosage: 2 CAPLETS ONCE
     Route: 048
     Dates: start: 20181204, end: 20181204
  2. TYLENOL COLD PLUS HEAD CONGESTION SEVERE [Suspect]
     Active Substance: ACETAMINOPHEN\GUAIFENESIN\PHENYLEPHRINE HYDROCHLORIDE
     Indication: NASAL CONGESTION
     Dosage: 2 CAPLETS ONCE
     Route: 048
     Dates: start: 20181204, end: 20181204
  3. TYLENOL COLD PLUS HEAD CONGESTION SEVERE [Suspect]
     Active Substance: ACETAMINOPHEN\GUAIFENESIN\PHENYLEPHRINE HYDROCHLORIDE
     Indication: RHINORRHOEA
     Dosage: 2 CAPLETS ONCE
     Route: 048
     Dates: start: 20181204, end: 20181204

REACTIONS (2)
  - Expired product administered [Unknown]
  - Seizure [Unknown]

NARRATIVE: CASE EVENT DATE: 20181204
